FAERS Safety Report 8958605 (Version 1)
Quarter: 2012Q4

REPORT INFORMATION
  Report Type: Spontaneous
  Country: US (occurrence: None)
  Receive Date: 20121205
  Receipt Date: 20121205
  Transmission Date: 20130627
  Serious: Yes (Other)
  Sender: FDA-Public Use
  Company Number: None

PATIENT
  Sex: Male
  Weight: 118.39 kg

DRUGS (2)
  1. TRICOR 145 MG ABBOT [Suspect]
     Indication: BLOOD CHOLESTEROL
     Dosage: 145 MG  1/DAY
     Dates: start: 200607, end: 200904
  2. LIPTOR 20 MG PFIZER [Suspect]
     Dosage: 20 MG  1/DAY
     Dates: start: 201209, end: 201011

REACTIONS (3)
  - Myalgia [None]
  - Asthenia [None]
  - Gait disturbance [None]
